FAERS Safety Report 24416246 (Version 1)
Quarter: 2024Q4

REPORT INFORMATION
  Report Type: Spontaneous
  Country: US (occurrence: None)
  Receive Date: 20241008
  Receipt Date: 20241008
  Transmission Date: 20250115
  Serious: Yes (Hospitalization)
  Sender: Public
  Company Number: None

PATIENT
  Age: 96 Year
  Sex: Male

DRUGS (3)
  1. TORSEMIDE [Suspect]
     Active Substance: TORSEMIDE
     Indication: Hypertension
     Dosage: FREQUENCY : DAILY;?
     Route: 048
  2. SPIRONOLACTONE [Suspect]
     Active Substance: SPIRONOLACTONE
  3. POTASSIUM CHLORIDE [Suspect]
     Active Substance: POTASSIUM CHLORIDE

REACTIONS (8)
  - Dizziness [None]
  - Hypokalaemia [None]
  - Dizziness [None]
  - Acute kidney injury [None]
  - Acute kidney injury [None]
  - Dyspnoea exertional [None]
  - Polyuria [None]
  - Presyncope [None]

NARRATIVE: CASE EVENT DATE: 20240510
